FAERS Safety Report 7824748-1 (Version None)
Quarter: 2011Q4

REPORT INFORMATION
  Report Type: 
  Country: None (occurrence: None)
  Receive Date: 20111019
  Receipt Date: 20111013
  Transmission Date: 20120403
  Serious: Yes (Hospitalization, Other)
  Sender: FDA-Public Use
  Company Number: PHEH2011US03844

PATIENT
  Sex: Female
  Weight: 101 kg

DRUGS (9)
  1. NIASPAN [Concomitant]
     Dosage: 500 MG, UNK
  2. CLONAZEPAM [Concomitant]
     Dosage: 5 MG, BID
  3. RECLAST [Suspect]
     Indication: OSTEOPOROSIS
     Dosage: 5 MG, UNK
     Route: 042
     Dates: start: 20110314
  4. CRESTOR [Concomitant]
     Dosage: 10 MG, QD
  5. ASPIRIN [Concomitant]
     Dosage: 81 MG, UNK
  6. ALEVE [Concomitant]
     Dosage: UNK UKN, UNK
  7. ACTONEL [Concomitant]
     Indication: OSTEOPOROSIS
     Dosage: 150 MG, UNK
     Route: 048
     Dates: start: 20080820, end: 20110319
  8. CALCIUM WITH VITAMIN D [Concomitant]
     Dosage: 600 MG, BID
  9. BENICAR [Concomitant]
     Dosage: 40 MG, QD

REACTIONS (2)
  - FALL [None]
  - FEMUR FRACTURE [None]
